FAERS Safety Report 21144980 (Version 1)
Quarter: 2022Q3

REPORT INFORMATION
  Report Type: Spontaneous
  Country: PL (occurrence: PL)
  Receive Date: 20220728
  Receipt Date: 20220728
  Transmission Date: 20221027
  Serious: Yes (Other)
  Sender: FDA-Public Use
  Company Number: PL-SUN PHARMACEUTICAL INDUSTRIES LTD-2022R1-345978

PATIENT
  Age: 36 Year
  Sex: Female

DRUGS (6)
  1. LEUCOVORIN CALCIUM [Suspect]
     Active Substance: LEUCOVORIN CALCIUM
     Indication: Colon cancer
     Dosage: 1ST CYCLE
     Route: 065
     Dates: start: 20210317
  2. LEUCOVORIN CALCIUM [Suspect]
     Active Substance: LEUCOVORIN CALCIUM
     Dosage: 2ND CYCLE
     Route: 065
     Dates: start: 20210401
  3. OXALIPLATIN [Suspect]
     Active Substance: OXALIPLATIN
     Indication: Colon cancer
     Dosage: 1ST CYCLE
     Route: 065
     Dates: start: 20210317
  4. OXALIPLATIN [Suspect]
     Active Substance: OXALIPLATIN
     Dosage: 2ND CYCLE
     Route: 065
     Dates: start: 20210401
  5. FLUOROURACIL [Suspect]
     Active Substance: FLUOROURACIL
     Indication: Colon cancer
     Dosage: 1ST CYCLE
     Route: 065
     Dates: start: 20210317
  6. FLUOROURACIL [Suspect]
     Active Substance: FLUOROURACIL
     Dosage: 2ND CYCLE
     Route: 065
     Dates: start: 20210401

REACTIONS (1)
  - Transplant rejection [Unknown]
